FAERS Safety Report 10267790 (Version 1)
Quarter: 2014Q2

REPORT INFORMATION
  Report Type: Report from Study
  Country: GB (occurrence: GB)
  Receive Date: 20140630
  Receipt Date: 20140630
  Transmission Date: 20141212
  Serious: Yes (Death)
  Sender: FDA-Public Use
  Company Number: GB-MYLANLABS-2014S1015092

PATIENT
  Age: 88 Year
  Sex: Male

DRUGS (2)
  1. MEROPENEM [Suspect]
     Indication: OSTEOMYELITIS
     Route: 042
  2. CIPROFLOXACIN [Suspect]
     Indication: OSTEOMYELITIS
     Route: 065

REACTIONS (2)
  - Treatment failure [Fatal]
  - Osteomyelitis [Fatal]
